FAERS Safety Report 9304107 (Version 3)
Quarter: 2013Q3

REPORT INFORMATION
  Report Type: Report from Study
  Country: US (occurrence: US)
  Receive Date: 20130522
  Receipt Date: 20130828
  Transmission Date: 20140515
  Serious: Yes (Hospitalization, Other)
  Sender: FDA-Public Use
  Company Number: US-ABBOTT-13P-163-1091484-00

PATIENT
  Age: 85 Year
  Sex: Male
  Weight: 98.06 kg

DRUGS (11)
  1. HUMIRA [Suspect]
     Indication: RHEUMATOID ARTHRITIS
     Route: 058
     Dates: start: 2003, end: 201001
  2. HUMIRA [Suspect]
     Dates: start: 201004, end: 20130503
  3. PRADAXA [Suspect]
     Indication: ATRIAL FIBRILLATION
  4. COREG [Concomitant]
     Indication: ATRIAL FIBRILLATION
  5. IMMURAN [Concomitant]
     Indication: RHEUMATOID ARTHRITIS
  6. TYLENOL [Concomitant]
     Indication: PRODUCT USED FOR UNKNOWN INDICATION
  7. BLADDER 2.2 [Concomitant]
     Indication: PROPHYLAXIS
  8. BLADDER 2.2 [Concomitant]
     Indication: BLADDER DISORDER
  9. POTASSIUM CHLORIDE [Concomitant]
     Indication: BLOOD POTASSIUM DECREASED
  10. TRAVATAN [Concomitant]
     Indication: GLAUCOMA
  11. TIMOLOL [Concomitant]
     Indication: GLAUCOMA

REACTIONS (12)
  - Haemoglobin decreased [Unknown]
  - Gastrointestinal haemorrhage [Unknown]
  - Cardiac failure congestive [Unknown]
  - Bladder cancer [Unknown]
  - Renal failure chronic [Unknown]
  - Polyp [Not Recovered/Not Resolved]
  - Haemorrhage [Not Recovered/Not Resolved]
  - Diarrhoea haemorrhagic [Not Recovered/Not Resolved]
  - Gastrointestinal polyp haemorrhage [Not Recovered/Not Resolved]
  - Diarrhoea [Not Recovered/Not Resolved]
  - Iron deficiency anaemia [Unknown]
  - Rectal haemorrhage [Unknown]
